FAERS Safety Report 25933278 (Version 1)
Quarter: 2025Q4

REPORT INFORMATION
  Report Type: Spontaneous
  Country: US (occurrence: US)
  Receive Date: 20251017
  Receipt Date: 20251017
  Transmission Date: 20260118
  Serious: Yes (Other)
  Sender: ACCORD
  Company Number: US-Accord-508283

PATIENT
  Age: 5 Decade
  Sex: Female

DRUGS (3)
  1. HYDROXYCHLOROQUINE [Suspect]
     Active Substance: HYDROXYCHLOROQUINE
     Indication: Subacute cutaneous lupus erythematosus
  2. PREDNISONE [Suspect]
     Active Substance: PREDNISONE
     Indication: Tubulointerstitial nephritis
     Dosage: WITH TAPER
  3. POTASSIUM BICARBONATE [Suspect]
     Active Substance: POTASSIUM BICARBONATE
     Indication: Supplementation therapy

REACTIONS (5)
  - Maternal exposure during pregnancy [Unknown]
  - Cholestasis of pregnancy [Unknown]
  - Premature labour [Unknown]
  - Pre-eclampsia [Unknown]
  - Proteinuria [Unknown]
